FAERS Safety Report 19230502 (Version 1)
Quarter: 2021Q2

REPORT INFORMATION
  Report Type: Report from Study
  Country: CO (occurrence: CO)
  Receive Date: 20210507
  Receipt Date: 20210507
  Transmission Date: 20210717
  Serious: Yes (Other)
  Sender: FDA-Public Use
  Company Number: NVSC2021CO099150

PATIENT
  Sex: Female
  Weight: 65.7 kg

DRUGS (3)
  1. LEVOTHYROXINE. [Concomitant]
     Active Substance: LEVOTHYROXINE
     Indication: HYPERTENSION
     Dosage: 50 UG, QD (DID NOT REMEMBER START DATE)
     Route: 048
  2. AMLODIPINE [Concomitant]
     Active Substance: AMLODIPINE BESYLATE
     Indication: HYPERTENSION
     Dosage: 5 MG, QD (STARTED 10 YEARS AGO)
     Route: 048
  3. LOSARTAN. [Suspect]
     Active Substance: LOSARTAN
     Indication: HYPERTENSION
     Dosage: 50 MG, Q12H (STARTED 10 YEARS AGO)
     Route: 048

REACTIONS (2)
  - Polycythaemia vera [Unknown]
  - Off label use [Unknown]
